FAERS Safety Report 8390157 (Version 2)
Quarter: 2012Q4

REPORT INFORMATION
  Report Type: 
  Country: BR (occurrence: BR)
  Receive Date: 20120203
  Receipt Date: 20120904
  Transmission Date: 20130627
  Serious: Yes (Other)
  Sender: FDA-Public Use
  Company Number: BR-AMGEN-BRASP2012006475

PATIENT
  Age: 60 Year
  Sex: Female
  Weight: 75 kg

DRUGS (6)
  1. ENBREL [Suspect]
     Indication: PSORIATIC ARTHROPATHY
     Dosage: 50 mg, 1x/week
     Route: 058
     Dates: start: 20110505
  2. ENBREL [Suspect]
     Dosage: 50 mg, qwk
     Route: 058
     Dates: end: 201208
  3. OMEPRAZOLE [Concomitant]
     Dosage: UNK
  4. HYDROCHLOROTHIAZIDE [Concomitant]
     Dosage: UNK
  5. BUSCOPAN [Concomitant]
     Dosage: UNK
  6. DIPYRONE [Concomitant]
     Dosage: UNK

REACTIONS (4)
  - Gastrointestinal oedema [Unknown]
  - Back pain [Unknown]
  - Rash macular [Unknown]
  - Drug ineffective [Unknown]
